FAERS Safety Report 9889268 (Version 3)
Quarter: 2014Q3

REPORT INFORMATION
  Report Type: Spontaneous
  Country: US (occurrence: US)
  Receive Date: 20140211
  Receipt Date: 20140822
  Transmission Date: 20150326
  Serious: Yes (Death, Other)
  Sender: FDA-Public Use
  Company Number: US-009507513-1402USA005010

PATIENT
  Sex: Female
  Weight: 103.86 kg

DRUGS (2)
  1. NUVARING [Suspect]
     Active Substance: ETHINYL ESTRADIOL\ETONOGESTREL
     Indication: CONTRACEPTION
     Dosage: 0.12/0.015 MG/24 HR, 1 RING FOR 3 WEEKS, REMOVE FOR 1 WEEK
     Route: 067
     Dates: start: 20101022, end: 2012
  2. NUVARING [Suspect]
     Active Substance: ETHINYL ESTRADIOL\ETONOGESTREL
     Dosage: 0.12/0.015 MG/24 HR, 1 RING FOR 3 WEEKS, REMOVE FOR 1 WEEK
     Route: 067
     Dates: start: 20120517

REACTIONS (9)
  - Splenic granuloma [Unknown]
  - Dysmenorrhoea [Unknown]
  - Deep vein thrombosis [Unknown]
  - Granulomatous liver disease [Unknown]
  - Pulmonary embolism [Fatal]
  - Vaginal discharge [Unknown]
  - Off label use [Unknown]
  - Anal lesion excision [Unknown]
  - Spinal osteoarthritis [Unknown]

NARRATIVE: CASE EVENT DATE: 2012
